FAERS Safety Report 9282455 (Version 1)
Quarter: 2013Q2

REPORT INFORMATION
  Report Type: Spontaneous
  Country: US (occurrence: US)
  Receive Date: 20130510
  Receipt Date: 20130510
  Transmission Date: 20140414
  Serious: Yes (Hospitalization, Other)
  Sender: FDA-Public Use
  Company Number: US-PFIZER INC-2013142937

PATIENT
  Age: 59 Year
  Sex: Female

DRUGS (2)
  1. RELPAX [Suspect]
     Dosage: 40 MG, AS NEEDED (1 PO PRN, MAX 2 IN 24HR)
     Route: 048
  2. NEURONTIN [Suspect]
     Dosage: 400 MG, 2X/DAY

REACTIONS (1)
  - Suicide attempt [Unknown]
